FAERS Safety Report 9333199 (Version 1)
Quarter: 2013Q2

REPORT INFORMATION
  Report Type: Spontaneous
  Country: NO (occurrence: None)
  Receive Date: 20130604
  Receipt Date: 20130604
  Transmission Date: 20140414
  Serious: Yes (Death, Hospitalization, Other)
  Sender: FDA-Public Use
  Company Number: AUR-APL-2013-04615

PATIENT
  Age: 48 Year
  Sex: Male

DRUGS (7)
  1. METFORMIN (METFORMIN) [Suspect]
     Indication: TYPE 2 DIABETES MELLITUS
     Route: 048
     Dates: start: 2008
  2. ZOLOFT (SERTRALINE HYDROCHLORIDE) [Concomitant]
  3. SIMVASTATIN (SIMVASTATIN) [Concomitant]
  4. TOLVON (MIANSERIN HYDROCHLORIDE) [Concomitant]
  5. ALLOPUR (ALLOPURINOL) [Concomitant]
  6. METOPROLOL (METOPROLOL) [Concomitant]
  7. LANSOPRAZOLE (LANSOPRAZOLE) [Concomitant]

REACTIONS (5)
  - Diarrhoea [None]
  - Sepsis [None]
  - Gastroenteritis [None]
  - Lactic acidosis [None]
  - Multi-organ failure [None]
